APPROVED DRUG PRODUCT: METFORMIN HYDROCHLORIDE
Active Ingredient: METFORMIN HYDROCHLORIDE
Strength: 500MG
Dosage Form/Route: TABLET, EXTENDED RELEASE;ORAL
Application: A203832 | Product #001 | TE Code: AB2
Applicant: MPP PHARMA LLC
Approved: Dec 26, 2017 | RLD: No | RS: No | Type: RX